FAERS Safety Report 5158755-7 (Version None)
Quarter: 2006Q4

REPORT INFORMATION
  Report Type: 
  Country: None (occurrence: None)
  Receive Date: 20061128
  Receipt Date: 20061122
  Transmission Date: 20070319
  Serious: Yes (Other)
  Sender: FDA-Public Use
  Company Number: US-JNJFOC-20060904296

PATIENT
  Sex: Male
  Weight: 82.56 kg

DRUGS (6)
  1. REMICADE [Suspect]
     Route: 042
     Dates: start: 20020101
  2. REMICADE [Suspect]
     Route: 042
     Dates: start: 20020101
  3. REMICADE [Suspect]
     Route: 042
     Dates: start: 20020101
  4. REMICADE [Suspect]
     Indication: COLITIS ULCERATIVE
     Route: 042
     Dates: start: 20020101
  5. STEROIDS [Concomitant]
  6. ASACOL [Concomitant]

REACTIONS (1)
  - MALIGNANT PALATE NEOPLASM [None]
